FAERS Safety Report 23050709 (Version 1)
Quarter: 2023Q4

REPORT INFORMATION
  Report Type: Spontaneous
  Country: US (occurrence: None)
  Receive Date: 20231009
  Receipt Date: 20231009
  Transmission Date: 20240109
  Serious: Yes (Hospitalization)
  Sender: FDA-Public Use
  Company Number: None

PATIENT
  Sex: Female

DRUGS (1)
  1. PROGESTERONE [Suspect]
     Active Substance: PROGESTERONE
     Indication: Infertility female
     Dosage: OTHER QUANTITY : 25MG TO 75MG;?FREQUENCY : DAILY;?
     Route: 030
     Dates: start: 202308

REACTIONS (2)
  - Anaphylactoid reaction [None]
  - Anaphylactic reaction [None]
